FAERS Safety Report 4464047-1 (Version None)
Quarter: 2004Q4

REPORT INFORMATION
  Report Type: 
  Country: None (occurrence: None)
  Receive Date: 20041001
  Receipt Date: 20040920
  Transmission Date: 20050328
  Serious: Yes (Hospitalization, Other)
  Sender: FDA-Public Use
  Company Number: US-BRISTOL-MYERS SQUIBB COMPANY-12709291

PATIENT
  Age: 72 Year
  Sex: Female

DRUGS (8)
  1. WARFARIN SODIUM [Interacting]
     Dosage: RESTARTED 1 MO AFTER DISCHARGE
  2. AZITHROMYCIN [Interacting]
     Dosage: DURATION NOT REPORTED
     Route: 042
  3. APAP TAB [Suspect]
  4. PREDNISONE [Suspect]
  5. LISINOPRIL [Concomitant]
  6. FUROSEMIDE [Concomitant]
  7. DILTIAZEM HCL [Concomitant]
  8. POTASSIUM CHLORIDE [Concomitant]

REACTIONS (6)
  - ABDOMINAL HAEMATOMA [None]
  - COUGH [None]
  - DECREASED APPETITE [None]
  - DRUG INTERACTION [None]
  - INTERNATIONAL NORMALISED RATIO INCREASED [None]
  - PYREXIA [None]
